APPROVED DRUG PRODUCT: IBANDRONATE SODIUM
Active Ingredient: IBANDRONATE SODIUM
Strength: EQ 150MG BASE
Dosage Form/Route: TABLET;ORAL
Application: A078995 | Product #001
Applicant: PHARMOBEDIENT CONSULTING LLC
Approved: Mar 19, 2012 | RLD: No | RS: No | Type: DISCN